FAERS Safety Report 7724727-9 (Version None)
Quarter: 2011Q3

REPORT INFORMATION
  Report Type: 
  Country: None (occurrence: None)
  Receive Date: 20110901
  Receipt Date: 20110823
  Transmission Date: 20111222
  Serious: Yes (Other)
  Sender: FDA-Public Use
  Company Number: CH-ELI_LILLY_AND_COMPANY-CH201108008325

PATIENT
  Age: 71 Year
  Sex: Female
  Weight: 48 kg

DRUGS (5)
  1. HUMALOG [Suspect]
     Indication: DIABETES MELLITUS
     Dosage: 4 U, UNKNOWN
  2. CALCIMAGON-D3 [Concomitant]
     Indication: OSTEOPOROSIS
  3. AMLODIPINE BESYLATE [Concomitant]
     Indication: HYPERTENSION
  4. LANTUS [Concomitant]
     Indication: DIABETES MELLITUS
  5. ESCITALOPRAM [Concomitant]
     Indication: DEPRESSION

REACTIONS (2)
  - DRUG DOSE OMISSION [None]
  - HYPERGLYCAEMIA [None]
